FAERS Safety Report 9571144 (Version 1)
Quarter: 2013Q3

REPORT INFORMATION
  Report Type: Spontaneous
  Country: US (occurrence: None)
  Receive Date: 20130927
  Receipt Date: 20130927
  Transmission Date: 20140515
  Serious: Yes (Hospitalization)
  Sender: FDA-Public Use
  Company Number: None

PATIENT
  Age: 53 Year
  Sex: Female
  Weight: 61.9 kg

DRUGS (2)
  1. WARFARIN [Suspect]
     Indication: ATRIAL FIBRILLATION
     Route: 048
     Dates: start: 20110128
  2. AZITHROMYCIN [Suspect]
     Route: 048
     Dates: start: 20130816, end: 20130823

REACTIONS (4)
  - International normalised ratio increased [None]
  - Drug interaction [None]
  - Gastrointestinal haemorrhage [None]
  - Gastric haemorrhage [None]
